FAERS Safety Report 5763279-X (Version None)
Quarter: 2008Q2

REPORT INFORMATION
  Report Type: 
  Country: None (occurrence: None)
  Receive Date: 20080604
  Receipt Date: 20080604
  Transmission Date: 20081010
  Serious: Yes (Hospitalization)
  Sender: FDA-Public Use
  Company Number: None

PATIENT
  Age: 23 Year
  Sex: Female
  Weight: 78.9259 kg

DRUGS (1)
  1. SKELAXIN [Suspect]
     Dosage: 800 MG ONCE PO
     Route: 048
     Dates: start: 20080529, end: 20080529

REACTIONS (1)
  - APPENDICITIS [None]
